FAERS Safety Report 9436623 (Version 1)
Quarter: 2013Q3

REPORT INFORMATION
  Report Type: Spontaneous
  Country: US (occurrence: None)
  Receive Date: 20130801
  Receipt Date: 20130801
  Transmission Date: 20140515
  Serious: Yes (Hospitalization)
  Sender: FDA-Public Use
  Company Number: None

PATIENT
  Age: 58 Year
  Sex: Female
  Weight: 69.4 kg

DRUGS (1)
  1. LEVAQUIN [Suspect]
     Indication: UPPER RESPIRATORY TRACT INFECTION
     Dosage: 1 TABLET DAILY
     Dates: start: 20130722, end: 20130728

REACTIONS (6)
  - Chest pain [None]
  - Heart rate increased [None]
  - Headache [None]
  - Fatigue [None]
  - Anxiety [None]
  - Depression [None]
